FAERS Safety Report 26162617 (Version 1)
Quarter: 2025Q4

REPORT INFORMATION
  Report Type: Spontaneous
  Country: US (occurrence: None)
  Receive Date: 20251215
  Receipt Date: 20251215
  Transmission Date: 20260118
  Serious: Yes (unspecified)
  Sender: FDA-CTU
  Company Number: None

PATIENT
  Age: 44 Year
  Sex: Female
  Weight: 81 kg

DRUGS (1)
  1. MONOFERRIC [Suspect]
     Active Substance: FERRIC DERISOMALTOSE
     Route: 042

REACTIONS (9)
  - Infusion related reaction [None]
  - Chest discomfort [None]
  - Chest pain [None]
  - Dyspnoea [None]
  - Throat tightness [None]
  - Hypertension [None]
  - Erythema [None]
  - Flushing [None]
  - Heart rate increased [None]

NARRATIVE: CASE EVENT DATE: 20251209
